FAERS Safety Report 13408273 (Version 1)
Quarter: 2017Q2

REPORT INFORMATION
  Report Type: Spontaneous
  Country: US (occurrence: US)
  Receive Date: 20170406
  Receipt Date: 20170406
  Transmission Date: 20170830
  Serious: No
  Sender: FDA-Public Use
  Company Number: US-GLENMARK PHARMACEUTICALS-2016GMK025631

PATIENT

DRUGS (1)
  1. CICLOPIROX. [Suspect]
     Active Substance: CICLOPIROX
     Indication: HERPES VIRUS INFECTION
     Dosage: UNK
     Route: 061
     Dates: start: 20161223

REACTIONS (3)
  - Application site vesicles [Not Recovered/Not Resolved]
  - Product use in unapproved indication [Unknown]
  - Application site papules [Not Recovered/Not Resolved]

NARRATIVE: CASE EVENT DATE: 20161224
